FAERS Safety Report 17860883 (Version 6)
Quarter: 2023Q4

REPORT INFORMATION
  Report Type: Report from Study
  Country: US (occurrence: US)
  Receive Date: 20200604
  Receipt Date: 20231111
  Transmission Date: 20240109
  Serious: Yes (Hospitalization, Other)
  Sender: FDA-Public Use
  Company Number: US-GW PHARMA-202005USGW01969

PATIENT
  Sex: Male
  Weight: 36.3 kg

DRUGS (11)
  1. EPIDIOLEX [Suspect]
     Active Substance: CANNABIDIOL
     Indication: Seizure
     Dosage: 180 MILLIGRAM, BID
     Route: 048
     Dates: start: 2019
  2. EPIDIOLEX [Suspect]
     Active Substance: CANNABIDIOL
     Indication: Lennox-Gastaut syndrome
     Dosage: 250 MILLIGRAM, BID
     Route: 048
  3. EPIDIOLEX [Suspect]
     Active Substance: CANNABIDIOL
     Dosage: 200 MILLIGRAM, BID
     Route: 048
  4. EPIDIOLEX [Suspect]
     Active Substance: CANNABIDIOL
     Dosage: 1.8 MILLILITER, GTUBE
  5. EPIDIOLEX [Suspect]
     Active Substance: CANNABIDIOL
     Dosage: TAKE 1.8 ML (180 MG TOTAL) BY G-TUBE IN THE MORNING AND 1.8 ML (180 MG TOTAL) IN THE EVENING
     Route: 048
  6. VIGABATRIN [Suspect]
     Active Substance: VIGABATRIN
     Indication: Product used for unknown indication
     Dosage: UNK
  7. VIMPAT [Concomitant]
     Active Substance: LACOSAMIDE
     Indication: Product used for unknown indication
     Dosage: UNK
  8. SABRIL [Concomitant]
     Active Substance: VIGABATRIN
     Indication: Lennox-Gastaut syndrome
     Dosage: 1500 MILLIGRAM, BID
  9. PHENOBARBITAL [Concomitant]
     Active Substance: PHENOBARBITAL
     Indication: Product used for unknown indication
     Dosage: UNK
  10. CLOBAZAM [Concomitant]
     Active Substance: CLOBAZAM
     Dosage: UNK
  11. TEMAZEPAM [Concomitant]
     Active Substance: TEMAZEPAM
     Dosage: UNK

REACTIONS (4)
  - Generalised tonic-clonic seizure [Unknown]
  - Seizure [Unknown]
  - Seizure [Unknown]
  - Product dose omission issue [Unknown]
